FAERS Safety Report 6704894-6 (Version None)
Quarter: 2010Q2

REPORT INFORMATION
  Report Type: 
  Country: None (occurrence: None)
  Receive Date: 20100430
  Receipt Date: 20091229
  Transmission Date: 20101027
  Serious: No
  Sender: FDA-Public Use
  Company Number: US-ASTRAZENECA-2009SE33853

PATIENT
  Age: 20 Year
  Sex: Male
  Weight: 63.5 kg

DRUGS (4)
  1. NEXIUM [Suspect]
     Indication: GASTROOESOPHAGEAL REFLUX DISEASE
     Route: 048
     Dates: start: 20090101
  2. FIBER THERAPY [Concomitant]
  3. ZANTAC OTC [Concomitant]
  4. CAS-X [Concomitant]

REACTIONS (2)
  - DRUG INEFFECTIVE [None]
  - SENSATION OF FOREIGN BODY [None]
